FAERS Safety Report 7232866-4 (Version None)
Quarter: 2011Q1

REPORT INFORMATION
  Report Type: 
  Country: None (occurrence: None)
  Receive Date: 20110119
  Receipt Date: 20110105
  Transmission Date: 20110831
  Serious: No
  Sender: FDA-Public Use
  Company Number: US-B.I. PHARMACEUTICALS,INC./RIDGEFIELD-2011-BP-00723BP

PATIENT
  Sex: Male

DRUGS (7)
  1. DILTIAZEM [Concomitant]
     Dosage: 240 MG
     Route: 048
  2. DIOVAN [Concomitant]
     Dosage: 80 MG
     Route: 048
  3. PRADAXA [Suspect]
     Indication: ATRIAL FIBRILLATION
     Dosage: 300 MG
     Route: 048
     Dates: start: 20110102
  4. TRILIPIX [Concomitant]
     Indication: BLOOD TRIGLYCERIDES INCREASED
     Dosage: 80 MG
     Route: 048
  5. CRESTOR [Concomitant]
     Indication: BLOOD CHOLESTEROL INCREASED
     Dosage: 10 MG
     Route: 048
  6. ASPIRIN [Concomitant]
     Dosage: 81 MG
     Route: 048
  7. DIGOXIN [Concomitant]
     Dosage: 0.125 MG
     Route: 048

REACTIONS (1)
  - OEDEMA PERIPHERAL [None]
